FAERS Safety Report 9290459 (Version 1)
Quarter: 2013Q2

REPORT INFORMATION
  Report Type: Report from Study
  Country: ID (occurrence: ID)
  Receive Date: 20130515
  Receipt Date: 20130515
  Transmission Date: 20140414
  Serious: Yes (Hospitalization)
  Sender: FDA-Public Use
  Company Number: ID-ROCHE-1223777

PATIENT
  Sex: Male

DRUGS (3)
  1. AVASTIN [Suspect]
     Indication: COLORECTAL CANCER METASTATIC
     Route: 041
     Dates: start: 20121229
  2. XELODA [Concomitant]
     Indication: COLORECTAL CANCER METASTATIC
     Route: 048
  3. OXALIPLATIN [Concomitant]
     Indication: COLORECTAL CANCER METASTATIC

REACTIONS (1)
  - Surgery [Unknown]
